FAERS Safety Report 24888363 (Version 1)
Quarter: 2025Q1

REPORT INFORMATION
  Report Type: Other
  Country: US (occurrence: US)
  Receive Date: 20250127
  Receipt Date: 20250127
  Transmission Date: 20250409
  Serious: Yes (Death)
  Sender: ANI
  Company Number: US-ANIPHARMA-015471

PATIENT
  Age: 8 Year
  Sex: Male

DRUGS (6)
  1. TEMOZOLOMIDE [Suspect]
     Active Substance: TEMOZOLOMIDE
     Indication: Metastases to central nervous system
  2. REGORAFENIB [Concomitant]
     Active Substance: REGORAFENIB
     Indication: Osteosarcoma
  3. IFOSFAMIDE [Concomitant]
     Active Substance: IFOSFAMIDE
     Indication: Osteosarcoma
  4. ETOPOSIDE [Concomitant]
     Active Substance: ETOPOSIDE
     Indication: Osteosarcoma
  5. PALBOCICLIB [Concomitant]
     Active Substance: PALBOCICLIB
     Indication: Osteosarcoma
  6. TEMOZOLOMIDE [Suspect]
     Active Substance: TEMOZOLOMIDE
     Indication: Osteosarcoma

REACTIONS (1)
  - Drug ineffective [Fatal]
